FAERS Safety Report 15283139 (Version 3)
Quarter: 2021Q1

REPORT INFORMATION
  Report Type: Other
  Country: CA (occurrence: CA)
  Receive Date: 20180816
  Receipt Date: 20210205
  Transmission Date: 20210419
  Serious: Yes (Other)
  Sender: FDA-Public Use
  Company Number: CA-APOTEX-2018AP018774

PATIENT
  Age: 26 Year
  Sex: Female

DRUGS (17)
  1. SUNITINIB MALATE. [Suspect]
     Active Substance: SUNITINIB MALATE
     Indication: PARAGANGLION NEOPLASM MALIGNANT
     Dosage: UNK
     Route: 065
  2. MESNA. [Suspect]
     Active Substance: MESNA
     Indication: PHAEOCHROMOCYTOMA
     Dosage: UNK
     Route: 065
  3. CYCLOPHOSPHAMIDE. [Suspect]
     Active Substance: CYCLOPHOSPHAMIDE
     Indication: PARAGANGLION NEOPLASM MALIGNANT
  4. PROCYTOX [Suspect]
     Active Substance: CYCLOPHOSPHAMIDE
     Indication: PHAEOCHROMOCYTOMA
     Dosage: UNK
     Route: 065
  5. UROMITEXAN [Suspect]
     Active Substance: MESNA
     Indication: PHAEOCHROMOCYTOMA
     Dosage: UNK
     Route: 065
  6. MESNA. [Suspect]
     Active Substance: MESNA
     Indication: PARAGANGLION NEOPLASM MALIGNANT
  7. AFINITOR [Suspect]
     Active Substance: EVEROLIMUS
     Indication: PHAEOCHROMOCYTOMA
     Dosage: UNK
     Route: 065
  8. AFINITOR [Suspect]
     Active Substance: EVEROLIMUS
     Indication: PARAGANGLION NEOPLASM MALIGNANT
  9. TEMOZOLOMIDE. [Suspect]
     Active Substance: TEMOZOLOMIDE
     Indication: PHAEOCHROMOCYTOMA
  10. TOPOTECAN HYDROCHLORIDE. [Suspect]
     Active Substance: TOPOTECAN HYDROCHLORIDE
     Indication: PARAGANGLION NEOPLASM MALIGNANT
     Dosage: UNK
     Route: 065
  11. TOPOTECAN HYDROCHLORIDE. [Suspect]
     Active Substance: TOPOTECAN HYDROCHLORIDE
     Indication: PHAEOCHROMOCYTOMA
  12. CYCLOPHOSPHAMIDE. [Suspect]
     Active Substance: CYCLOPHOSPHAMIDE
     Indication: PHAEOCHROMOCYTOMA
     Dosage: UNK
     Route: 065
  13. UROMITEXAN [Suspect]
     Active Substance: MESNA
     Indication: PARAGANGLION NEOPLASM MALIGNANT
  14. VANDETANIB. [Suspect]
     Active Substance: VANDETANIB
     Indication: PHAEOCHROMOCYTOMA
     Dosage: UNK
     Route: 065
  15. VANDETANIB. [Suspect]
     Active Substance: VANDETANIB
     Indication: PARAGANGLION NEOPLASM MALIGNANT
  16. PROCYTOX [Suspect]
     Active Substance: CYCLOPHOSPHAMIDE
     Indication: PARAGANGLION NEOPLASM MALIGNANT
  17. TEMOZOLOMIDE. [Suspect]
     Active Substance: TEMOZOLOMIDE
     Indication: PARAGANGLION NEOPLASM MALIGNANT
     Dosage: UNK
     Route: 065

REACTIONS (9)
  - Metastases to bone [Recovering/Resolving]
  - Product use in unapproved indication [Unknown]
  - Neoplasm progression [Unknown]
  - Metastases to central nervous system [Recovering/Resolving]
  - Metastases to liver [Recovering/Resolving]
  - Insomnia [Recovering/Resolving]
  - Headache [Recovering/Resolving]
  - Pancytopenia [Recovering/Resolving]
  - Off label use [Unknown]
